FAERS Safety Report 21518387 (Version 1)
Quarter: 2022Q4

REPORT INFORMATION
  Report Type: Report from Study
  Country: US (occurrence: US)
  Receive Date: 20221028
  Receipt Date: 20221028
  Transmission Date: 20230113
  Serious: Yes (Other)
  Sender: FDA-Public Use
  Company Number: US-ABBVIE-4176837

PATIENT
  Sex: Male

DRUGS (1)
  1. IMBRUVICA [Suspect]
     Active Substance: IBRUTINIB
     Indication: Mantle cell lymphoma
     Route: 048

REACTIONS (8)
  - Choking [Unknown]
  - Paraesthesia [Unknown]
  - Bone pain [Unknown]
  - Muscle spasms [Unknown]
  - Productive cough [Unknown]
  - Throat tightness [Unknown]
  - Oropharyngeal pain [Unknown]
  - Muscle spasms [Unknown]
